FAERS Safety Report 18127297 (Version 1)
Quarter: 2020Q3

REPORT INFORMATION
  Report Type: Spontaneous
  Country: JP (occurrence: JP)
  Receive Date: 20200810
  Receipt Date: 20200810
  Transmission Date: 20201103
  Serious: Yes (Other)
  Sender: FDA-Public Use
  Company Number: JP-SUN PHARMACEUTICAL INDUSTRIES LTD-2020RR-256450

PATIENT
  Age: 78 Year
  Sex: Male

DRUGS (6)
  1. OXALIPLATIN. [Suspect]
     Active Substance: OXALIPLATIN
     Indication: RECTAL CANCER
     Dosage: 1 CYCLE CAPEOX
     Route: 065
  2. CAPECITABINE. [Suspect]
     Active Substance: CAPECITABINE
     Indication: RECTAL CANCER
     Dosage: 1 CYCLE CAPEOX
     Route: 065
  3. IRINOTECAN [Suspect]
     Active Substance: IRINOTECAN
     Indication: RECTAL CANCER
     Dosage: 22 CYCLES IRIS
     Route: 065
  4. TEGAFUR [Suspect]
     Active Substance: TEGAFUR
     Indication: RECTAL CANCER
     Dosage: 1 CYCLE OF TEGAFUR (UFT) PLUS CALCIUM FOLINATE (LV)
     Route: 065
  5. CALCIUM FOLINAT [Suspect]
     Active Substance: LEUCOVORIN CALCIUM
     Indication: RECTAL CANCER
     Dosage: 1 CYCLE OF TEGAFUR (UFT) PLUS CALCIUM FOLINATE (LV)
     Route: 065
  6. TS?1 [Suspect]
     Active Substance: GIMERACIL\OTERACIL\TEGAFUR
     Indication: RECTAL CANCER
     Dosage: 22 CYCLES IRIS
     Route: 065

REACTIONS (5)
  - Neuralgia [Unknown]
  - Therapeutic product effect incomplete [Unknown]
  - Neuropathy peripheral [Unknown]
  - Herpes zoster [Unknown]
  - Cerebral infarction [Unknown]
